FAERS Safety Report 7309597-5 (Version None)
Quarter: 2011Q1

REPORT INFORMATION
  Report Type: 
  Country: None (occurrence: None)
  Receive Date: 20110223
  Receipt Date: 20110210
  Transmission Date: 20110831
  Serious: Yes (Other)
  Sender: FDA-Public Use
  Company Number: US-BAYER-2011-013733

PATIENT
  Sex: Male

DRUGS (10)
  1. OPTIMARK [Suspect]
     Indication: NUCLEAR MAGNETIC RESONANCE IMAGING
  2. MULTIHANCE [Suspect]
     Indication: ANGIOGRAM
  3. OMNISCAN [Suspect]
     Indication: ANGIOGRAM
  4. OPTIMARK [Suspect]
     Indication: ANGIOGRAM
  5. MAGNEVIST [Suspect]
     Indication: NUCLEAR MAGNETIC RESONANCE IMAGING
  6. OMNISCAN [Suspect]
     Indication: NUCLEAR MAGNETIC RESONANCE IMAGING
  7. MULTIHANCE [Suspect]
     Indication: NUCLEAR MAGNETIC RESONANCE IMAGING
  8. MAGNEVIST [Suspect]
     Indication: ANGIOGRAM
  9. PROHANCE [Suspect]
     Indication: NUCLEAR MAGNETIC RESONANCE IMAGING
  10. PROHANCE [Suspect]
     Indication: ANGIOGRAM

REACTIONS (1)
  - NEPHROGENIC SYSTEMIC FIBROSIS [None]
